FAERS Safety Report 10094658 (Version 1)
Quarter: 2014Q2

REPORT INFORMATION
  Report Type: Spontaneous
  Country: CA (occurrence: CA)
  Receive Date: 20140422
  Receipt Date: 20140422
  Transmission Date: 20141212
  Serious: Yes (Other)
  Sender: FDA-Public Use
  Company Number: CA-SA-2014SA045580

PATIENT
  Sex: Female

DRUGS (6)
  1. TAXOTERE [Suspect]
     Indication: BREAST CANCER
     Route: 065
     Dates: start: 200903, end: 201103
  2. HERCEPTIN [Suspect]
     Indication: BREAST CANCER
     Route: 065
     Dates: start: 200608, end: 201402
  3. PERJETA [Suspect]
     Indication: BREAST CANCER
     Route: 065
     Dates: start: 201103, end: 201203
  4. VINORELBINE [Concomitant]
     Dates: start: 201206, end: 201402
  5. TAXOL [Concomitant]
     Dates: start: 200606, end: 200608
  6. ADRIAMYCIN [Concomitant]
     Dates: start: 200606, end: 200608

REACTIONS (1)
  - Pituitary tumour [Unknown]
